FAERS Safety Report 14347742 (Version 4)
Quarter: 2019Q3

REPORT INFORMATION
  Report Type: Spontaneous
  Country: US (occurrence: US)
  Receive Date: 20180103
  Receipt Date: 20190828
  Transmission Date: 20191004
  Serious: No
  Sender: FDA-Public Use
  Company Number: US-PFIZER INC-2017554992

PATIENT
  Age: 68 Year
  Sex: Female
  Weight: 63 kg

DRUGS (2)
  1. LYRICA [Suspect]
     Active Substance: PREGABALIN
     Indication: BACK PAIN
     Dosage: 150 MG, 2X/DAY
     Route: 048
     Dates: start: 2018, end: 201809
  2. LYRICA [Suspect]
     Active Substance: PREGABALIN
     Dosage: 1 DF, 2X/DAY (ONE CAPSULE AT BREAKFAST AND ONE CAPSULE IN THE AFTERNOON)
     Route: 048
     Dates: end: 201907

REACTIONS (11)
  - Nervousness [Unknown]
  - Nausea [Unknown]
  - Pain [Unknown]
  - Agitation [Unknown]
  - Drug withdrawal syndrome [Not Recovered/Not Resolved]
  - Tremor [Not Recovered/Not Resolved]
  - Heart rate increased [Unknown]
  - Memory impairment [Unknown]
  - Nerve injury [Unknown]
  - Diarrhoea [Recovered/Resolved]
  - Crying [Not Recovered/Not Resolved]

NARRATIVE: CASE EVENT DATE: 2018
